FAERS Safety Report 9535103 (Version 1)
Quarter: 2013Q3

REPORT INFORMATION
  Report Type: Spontaneous
  Country: GB (occurrence: GB)
  Receive Date: 20130918
  Receipt Date: 20130918
  Transmission Date: 20140515
  Serious: Yes (Disabling)
  Sender: FDA-Public Use
  Company Number: GB-MYLANLABS-2013S1020337

PATIENT
  Age: 55 Year
  Sex: Female

DRUGS (6)
  1. CLARITHROMYCIN [Suspect]
     Indication: PRODUCT USED FOR UNKNOWN INDICATION
     Dates: start: 20130820
  2. CETIRIZINE [Concomitant]
     Indication: PRODUCT USED FOR UNKNOWN INDICATION
     Dates: start: 20130503, end: 20130602
  3. ERYTHROMYCIN ETHYLSUCCINATE [Concomitant]
     Indication: PRODUCT USED FOR UNKNOWN INDICATION
     Dates: start: 20130805, end: 20130812
  4. PARACETAMOL [Concomitant]
     Indication: PRODUCT USED FOR UNKNOWN INDICATION
     Dates: start: 20130510
  5. TRAMADOL [Concomitant]
     Indication: PRODUCT USED FOR UNKNOWN INDICATION
     Dates: start: 20130510
  6. WARFARIN SODIUM [Concomitant]
     Indication: PRODUCT USED FOR UNKNOWN INDICATION
     Dates: start: 20130510

REACTIONS (4)
  - Erythema [Not Recovered/Not Resolved]
  - Rash generalised [Not Recovered/Not Resolved]
  - Pruritus [Not Recovered/Not Resolved]
  - Photosensitivity reaction [Not Recovered/Not Resolved]
